FAERS Safety Report 10673877 (Version 1)
Quarter: 2014Q4

REPORT INFORMATION
  Report Type: Spontaneous
  Country: US (occurrence: None)
  Receive Date: 20141222
  Receipt Date: 20141222
  Transmission Date: 20150529
  Serious: Yes (Other)
  Sender: FDA-Public Use
  Company Number: US-H14001-14-01811

PATIENT

DRUGS (1)
  1. ISONIAZID (ISONIAZID) (UNKNOWN) (ISONIAZID) [Suspect]
     Active Substance: ISONIAZID
     Indication: ANTIBIOTIC PROPHYLAXIS

REACTIONS (1)
  - Primary progressive multiple sclerosis [None]
